FAERS Safety Report 14024828 (Version 1)
Quarter: 2017Q3

REPORT INFORMATION
  Report Type: Spontaneous
  Country: AU (occurrence: AU)
  Receive Date: 20170929
  Receipt Date: 20170929
  Transmission Date: 20171128
  Serious: Yes (Death)
  Sender: FDA-Public Use
  Company Number: AU-PFIZER INC-2017419799

PATIENT
  Sex: Female

DRUGS (6)
  1. ORDINE [Suspect]
     Active Substance: MORPHINE
  2. FENTANYL CITRATE. [Suspect]
     Active Substance: FENTANYL CITRATE
  3. DIAZEPAM. [Suspect]
     Active Substance: DIAZEPAM
  4. MORPHINE [Suspect]
     Active Substance: MORPHINE
  5. MEPERIDINE HCL [Suspect]
     Active Substance: MEPERIDINE HYDROCHLORIDE
  6. OXYCODONE [Suspect]
     Active Substance: OXYCODONE

REACTIONS (4)
  - Intentional product misuse [Unknown]
  - Drug dependence [Fatal]
  - Overdose [Fatal]
  - Drug tolerance [Unknown]
